FAERS Safety Report 11546164 (Version 1)
Quarter: 2015Q3

REPORT INFORMATION
  Report Type: Report from Study
  Country: VE (occurrence: VE)
  Receive Date: 20150924
  Receipt Date: 20150924
  Transmission Date: 20151125
  Serious: Yes (Hospitalization, Other)
  Sender: FDA-Public Use
  Company Number: VE-ABBVIE-13P-178-1057866-00

PATIENT
  Age: 52 Year
  Sex: Male
  Weight: 103 kg

DRUGS (5)
  1. CALCORT [Concomitant]
     Active Substance: DEFLAZACORT
     Indication: PSORIASIS
     Dosage: VO. C-2 DAYS
     Dates: start: 2012
  2. ENBREL [Suspect]
     Active Substance: ETANERCEPT
     Indication: PRODUCT USED FOR UNKNOWN INDICATION
     Route: 065
     Dates: start: 200708, end: 200908
  3. METHOTREXATE [Concomitant]
     Active Substance: METHOTREXATE
     Indication: LYMPHOMA
     Dosage: VO, C-8 DAYS
     Dates: start: 201211
  4. ENBREL [Suspect]
     Active Substance: ETANERCEPT
     Route: 065
     Dates: start: 200708, end: 200908
  5. HUMIRA [Suspect]
     Active Substance: ADALIMUMAB
     Indication: PSORIASIS
     Route: 058
     Dates: start: 20091214, end: 201203

REACTIONS (2)
  - Mycosis fungoides [Unknown]
  - Granuloma [Recovered/Resolved with Sequelae]

NARRATIVE: CASE EVENT DATE: 201103
